FAERS Safety Report 10231229 (Version 1)
Quarter: 2014Q2

REPORT INFORMATION
  Report Type: Spontaneous
  Country: US (occurrence: None)
  Receive Date: 20140506
  Receipt Date: 20140506
  Transmission Date: 20141212
  Serious: Yes (Other)
  Sender: FDA-Public Use
  Company Number: 1286510

PATIENT
  Age: 71 Year
  Sex: Female

DRUGS (1)
  1. BEVACIZUMAB (BEVACIZUMAB) [Suspect]
     Indication: MALIGNANT PERITONEAL NEOPLASM

REACTIONS (1)
  - Hypertension [None]
